FAERS Safety Report 14532296 (Version 1)
Quarter: 2018Q1

REPORT INFORMATION
  Report Type: Spontaneous
  Country: US (occurrence: US)
  Receive Date: 20180214
  Receipt Date: 20180214
  Transmission Date: 20180509
  Serious: Yes (Other)
  Sender: FDA-Public Use
  Company Number: US-BAYER-2018-027802

PATIENT
  Age: 15 Year
  Sex: Female

DRUGS (1)
  1. CORICIDIN HBP COLD AND FLU [Suspect]
     Active Substance: ACETAMINOPHEN\CHLORPHENIRAMINE MALEATE

REACTIONS (6)
  - Drug abuse [Unknown]
  - Incorrect dosage administered [None]
  - Dysarthria [None]
  - Gait disturbance [None]
  - Dizziness [None]
  - Crying [None]
